FAERS Safety Report 6040563-6 (Version None)
Quarter: 2009Q1

REPORT INFORMATION
  Report Type: 
  Country: None (occurrence: None)
  Receive Date: 20090116
  Receipt Date: 20080418
  Transmission Date: 20090719
  Serious: No
  Sender: FDA-Public Use
  Company Number: US-BRISTOL-MYERS SQUIBB COMPANY-14139562

PATIENT
  Age: 4 Decade
  Sex: Female

DRUGS (4)
  1. ABILIFY [Suspect]
     Indication: DEVELOPMENTAL DELAY
     Dosage: STARTED AT 2MG FOR ONE WEEK THEN TITRATED TO 5MG THE 2ND WEEK
  2. ABILIFY [Suspect]
     Indication: DEPRESSION
     Dosage: STARTED AT 2MG FOR ONE WEEK THEN TITRATED TO 5MG THE 2ND WEEK
  3. CYMBALTA [Suspect]
  4. TOPAMAX [Concomitant]

REACTIONS (1)
  - OEDEMA PERIPHERAL [None]
